FAERS Safety Report 20657173 (Version 1)
Quarter: 2022Q1

REPORT INFORMATION
  Report Type: Other
  Country: US (occurrence: None)
  Receive Date: 20220331
  Receipt Date: 20220331
  Transmission Date: 20220424
  Serious: Yes (Other)
  Sender: FDA-Public Use
  Company Number: US-ROCHE-3061306

PATIENT
  Sex: Female
  Weight: 40.7 kg

DRUGS (4)
  1. NUTROPIN [Suspect]
     Active Substance: SOMATROPIN
     Indication: Turner^s syndrome
     Dosage: UNKNOWN
     Route: 058
  2. NUTROPIN [Suspect]
     Active Substance: SOMATROPIN
  3. KEPPRA [Concomitant]
     Active Substance: LEVETIRACETAM
  4. ESTRADIOL [Concomitant]
     Active Substance: ESTRADIOL

REACTIONS (2)
  - Menstruation irregular [Unknown]
  - Seizure [Unknown]
